FAERS Safety Report 16539158 (Version 3)
Quarter: 2019Q3

REPORT INFORMATION
  Report Type: Other
  Country: IT (occurrence: IT)
  Receive Date: 20190708
  Receipt Date: 20190814
  Transmission Date: 20191004
  Serious: Yes (Hospitalization, Other)
  Sender: FDA-Public Use
  Company Number: IT-APOTEX-2019AP017869

PATIENT
  Age: 80 Year
  Sex: Female

DRUGS (9)
  1. PAROXETINE. [Suspect]
     Active Substance: PAROXETINE
     Indication: DEPRESSION
     Dosage: 120 MG, SINGLE, IN TOTAL
     Route: 048
     Dates: start: 20190409, end: 20190409
  2. GABAPENTIN. [Suspect]
     Active Substance: GABAPENTIN
     Indication: DIABETIC NEUROPATHY
     Dosage: 7200 MG, SINGLE, IN TOTAL
     Route: 048
     Dates: start: 20190409, end: 20190409
  3. SEROQUEL [Suspect]
     Active Substance: QUETIAPINE FUMARATE
     Indication: PERSONALITY DISORDER
     Dosage: 1200 MG, SINGLE, IN TOTAL
     Route: 048
     Dates: start: 20190409, end: 20190409
  4. LASIX [Suspect]
     Active Substance: FUROSEMIDE
     Indication: HYPERTENSION
     Dosage: 300 MG, SINGLE, IN TOTAL
     Route: 048
     Dates: start: 20190409, end: 20190409
  5. TICLOPIDINE [Suspect]
     Active Substance: TICLOPIDINE
     Indication: TRANSIENT ISCHAEMIC ATTACK
     Dosage: 3000 MG, SINGLE,  IN TOTAL
     Route: 048
     Dates: start: 20190409, end: 20190409
  6. INSULIN [Concomitant]
     Active Substance: INSULIN NOS
     Indication: PRODUCT USED FOR UNKNOWN INDICATION
     Dosage: UNK
     Route: 065
  7. RANITIDINA DOC [Suspect]
     Active Substance: RANITIDINE HYDROCHLORIDE
     Dosage: UNK
     Route: 065
  8. RANITIDINA DOC [Suspect]
     Active Substance: RANITIDINE HYDROCHLORIDE
     Indication: HYPERCHLORHYDRIA
     Dosage: 450 MG, SINGLE, IN TOTAL
     Route: 048
     Dates: start: 20190409, end: 20190409
  9. STILNOX [Suspect]
     Active Substance: ZOLPIDEM TARTRATE
     Indication: INSOMNIA
     Dosage: 60 MG, SINGLE, IN TOTAL
     Route: 048
     Dates: start: 20190409, end: 20190409

REACTIONS (2)
  - Sopor [Recovering/Resolving]
  - Depressed level of consciousness [Recovering/Resolving]

NARRATIVE: CASE EVENT DATE: 20190409
